FAERS Safety Report 23294731 (Version 1)
Quarter: 2023Q4

REPORT INFORMATION
  Report Type: Spontaneous
  Country: IT (occurrence: IT)
  Receive Date: 20231213
  Receipt Date: 20231213
  Transmission Date: 20240110
  Serious: Yes (Other)
  Sender: FDA-Public Use
  Company Number: None

PATIENT
  Age: 83 Year
  Sex: Male

DRUGS (1)
  1. ACYCLOVIR [Suspect]
     Active Substance: ACYCLOVIR
     Indication: Antiviral treatment
     Dosage: 500 MG/5 TIMES A DAY
     Route: 065
     Dates: start: 20231123, end: 20231127

REACTIONS (3)
  - Blood urea increased [Recovering/Resolving]
  - Acute kidney injury [Recovering/Resolving]
  - Hypercreatinaemia [Recovering/Resolving]
